FAERS Safety Report 5165512-4 (Version None)
Quarter: 2006Q4

REPORT INFORMATION
  Report Type: 
  Country: None (occurrence: None)
  Receive Date: 20061206
  Receipt Date: 20061127
  Transmission Date: 20070319
  Serious: Yes (Other)
  Sender: FDA-Public Use
  Company Number: 2006UW26832

PATIENT
  Age: 53 Year
  Sex: Female

DRUGS (1)
  1. TAMOXIFEN CITRATE [Suspect]
     Route: 048

REACTIONS (3)
  - ASTHMA [None]
  - HYPERSENSITIVITY [None]
  - RASH GENERALISED [None]
